FAERS Safety Report 6333380-0 (Version None)
Quarter: 2009Q3

REPORT INFORMATION
  Report Type: 
  Country: None (occurrence: None)
  Receive Date: 20090828
  Receipt Date: 20090819
  Transmission Date: 20100115
  Serious: Yes (Hospitalization)
  Sender: FDA-Public Use
  Company Number: NL-CELGENEUS-114-20785-09081343

PATIENT
  Sex: Female
  Weight: 89 kg

DRUGS (18)
  1. THALIDOMIDE [Suspect]
     Indication: MULTIPLE MYELOMA
     Route: 048
     Dates: start: 20090601
  2. MELPHALAN HYDROCHLORIDE [Suspect]
     Indication: MULTIPLE MYELOMA
     Route: 048
     Dates: start: 20090809, end: 20090812
  3. PREDNISONE TAB [Suspect]
     Indication: MULTIPLE MYELOMA
     Route: 048
     Dates: start: 20090809, end: 20090812
  4. METOPROLOL [Concomitant]
     Indication: HYPERTENSION
     Route: 048
     Dates: start: 20090512
  5. CANDESARTAN CILEXETIL [Concomitant]
     Indication: HYPERTENSION
     Route: 048
     Dates: start: 20090512
  6. COTRIM [Concomitant]
     Indication: PROPHYLAXIS
     Dosage: 1/2 TABLET
     Route: 048
     Dates: start: 20090521
  7. FLUCONAZOLE [Concomitant]
     Indication: PROPHYLAXIS
     Route: 048
     Dates: start: 20090526
  8. ORAMORPH SR [Concomitant]
     Indication: PAIN
     Route: 048
  9. FENTANYL [Concomitant]
     Indication: PAIN
     Route: 062
  10. PARACETAMOL [Concomitant]
     Indication: PAIN
     Route: 054
  11. INSULIN ASPART [Concomitant]
     Indication: DIABETES MELLITUS
     Route: 058
  12. METFORMIN HCL [Concomitant]
     Indication: DIABETES MELLITUS
     Route: 048
  13. ALPHACALCIDOL [Concomitant]
     Indication: DRUG USE FOR UNKNOWN INDICATION
     Route: 048
  14. CALCIUM CARBONATE [Concomitant]
     Indication: DRUG USE FOR UNKNOWN INDICATION
     Route: 048
  15. ACENOCUMAROL [Concomitant]
     Indication: DRUG USE FOR UNKNOWN INDICATION
     Route: 048
  16. FUROSEMIDE [Concomitant]
     Indication: DRUG USE FOR UNKNOWN INDICATION
     Route: 048
     Dates: start: 20090728
  17. CLEMASTINE FUMARATE [Concomitant]
     Indication: DRUG USE FOR UNKNOWN INDICATION
     Route: 048
  18. MOVICOLON [Concomitant]
     Indication: CONSTIPATION
     Dosage: 2 SACHET/DAY
     Route: 048
     Dates: start: 20090818

REACTIONS (3)
  - CONSTIPATION [None]
  - DEHYDRATION [None]
  - DELIRIUM [None]
